FAERS Safety Report 10661844 (Version 2)
Quarter: 2015Q2

REPORT INFORMATION
  Report Type: Report from Study
  Country: US (occurrence: US)
  Receive Date: 20141218
  Receipt Date: 20150619
  Transmission Date: 20150821
  Serious: Yes (Death, Hospitalization, Other)
  Sender: FDA-Public Use
  Company Number: US-GILEAD-2014-0127414

PATIENT
  Age: 74 Year
  Sex: Female

DRUGS (16)
  1. LANTUS [Concomitant]
     Active Substance: INSULIN GLARGINE
  2. ECOTRIN [Concomitant]
     Active Substance: ASPIRIN
  3. AMBRISENTAN [Suspect]
     Active Substance: AMBRISENTAN
     Indication: PULMONARY HYPERTENSION
     Dosage: 10 MG, QD
     Route: 065
     Dates: start: 20130906
  4. AMBRISENTAN [Suspect]
     Active Substance: AMBRISENTAN
     Indication: SLEEP APNOEA SYNDROME
  5. XARELTO [Concomitant]
     Active Substance: RIVAROXABAN
  6. LIPITOR [Concomitant]
     Active Substance: ATORVASTATIN CALCIUM
  7. AMBRISENTAN [Suspect]
     Active Substance: AMBRISENTAN
     Indication: HYPOXIA
  8. NITROGLYCERIN. [Concomitant]
     Active Substance: NITROGLYCERIN
  9. HCTZ [Concomitant]
     Active Substance: HYDROCHLOROTHIAZIDE
  10. ATENOLOL. [Concomitant]
     Active Substance: ATENOLOL
  11. PREDNISONE. [Concomitant]
     Active Substance: PREDNISONE
  12. DILTIAZEM [Concomitant]
     Active Substance: DILTIAZEM
  13. ATACAND [Concomitant]
     Active Substance: CANDESARTAN CILEXETIL
  14. FLONASE                            /00908302/ [Concomitant]
  15. EFFIENT [Concomitant]
     Active Substance: PRASUGREL HYDROCHLORIDE
  16. ENALAPRIL [Concomitant]
     Active Substance: ENALAPRIL

REACTIONS (6)
  - Death [Fatal]
  - Oxygen saturation decreased [Unknown]
  - Pulmonary arterial hypertension [Unknown]
  - Lung disorder [Unknown]
  - Chronic obstructive pulmonary disease [Unknown]
  - Atrial fibrillation [Unknown]

NARRATIVE: CASE EVENT DATE: 20141203
